FAERS Safety Report 8858362 (Version 1)
Quarter: 2012Q4

REPORT INFORMATION
  Report Type: 
  Country: US (occurrence: US)
  Receive Date: 20121024
  Receipt Date: 20121024
  Transmission Date: 20130627
  Serious: No
  Sender: FDA-Public Use
  Company Number: US-AMGEN-USASP2011062149

PATIENT
  Age: 67 Year
  Sex: Female
  Weight: 74.83 kg

DRUGS (4)
  1. ENBREL [Suspect]
     Indication: PRODUCT USED FOR UNKNOWN INDICATION
     Dosage: UNK
     Dates: start: 1989, end: 201107
  2. HUMIRA [Concomitant]
     Indication: RHEUMATOID ARTHRITIS
     Dosage: 40 mg, q2wk
     Route: 058
     Dates: start: 20111003, end: 20111031
  3. HUMIRA [Concomitant]
     Dosage: 40 mg, qwk
  4. CELECOXIB [Concomitant]
     Indication: RHEUMATOID ARTHRITIS

REACTIONS (3)
  - Mobility decreased [Recovered/Resolved]
  - Condition aggravated [Recovered/Resolved]
  - Therapeutic product ineffective [Not Recovered/Not Resolved]
